FAERS Safety Report 10478832 (Version 1)
Quarter: 2014Q3

REPORT INFORMATION
  Report Type: Spontaneous
  Country: US (occurrence: US)
  Receive Date: 20140926
  Receipt Date: 20140926
  Transmission Date: 20150326
  Serious: Yes (Death)
  Sender: FDA-Public Use
  Company Number: US-ASTELLAS-2014US013189

PATIENT
  Sex: Male

DRUGS (1)
  1. TARCEVA [Suspect]
     Active Substance: ERLOTINIB HYDROCHLORIDE
     Indication: METASTASES TO THE MEDIASTINUM
     Route: 048
     Dates: start: 20140510

REACTIONS (4)
  - Drug dose omission [Unknown]
  - Pruritus [Unknown]
  - Death [Fatal]
  - Rash [Not Recovered/Not Resolved]
